FAERS Safety Report 20617892 (Version 1)
Quarter: 2022Q1

REPORT INFORMATION
  Report Type: Spontaneous
  Country: US (occurrence: US)
  Receive Date: 20220321
  Receipt Date: 20220321
  Transmission Date: 20220423
  Serious: No
  Sender: FDA-Public Use
  Company Number: US-ELI_LILLY_AND_COMPANY-US202203008519

PATIENT
  Sex: Male

DRUGS (3)
  1. EMGALITY [Suspect]
     Active Substance: GALCANEZUMAB-GNLM
     Indication: Cluster headache
     Dosage: 120 MG, UNKNOWN
     Route: 065
  2. PREDNISONE [Concomitant]
     Active Substance: PREDNISONE
     Indication: Headache
     Dosage: UNK
  3. BUTORPHANOL TARTRATE [Concomitant]
     Active Substance: BUTORPHANOL TARTRATE
     Indication: Headache
     Dosage: UNK (AS NEEDED)

REACTIONS (2)
  - Headache [Unknown]
  - Feeling abnormal [Unknown]
